FAERS Safety Report 10209841 (Version 1)
Quarter: 2014Q2

REPORT INFORMATION
  Report Type: Spontaneous
  Country: ES (occurrence: ES)
  Receive Date: 20140602
  Receipt Date: 20140602
  Transmission Date: 20141212
  Serious: Yes (Hospitalization)
  Sender: FDA-Public Use
  Company Number: PHHY2014ES063157

PATIENT
  Age: 74 Year
  Sex: Male

DRUGS (6)
  1. ZOMARIST (METFORMIN HYDROCHLORIDE, VILDAGLIPTIN) [Suspect]
     Indication: DIABETES MELLITUS
     Dosage: 1 DF (850MG METF AND 50MG VILDA), DAILY
     Route: 048
     Dates: start: 201306, end: 20130805
  2. ENALAPRIL [Interacting]
     Indication: HYPERTENSION
     Dosage: 20 MG, DAILY
     Route: 048
     Dates: start: 200803, end: 20130805
  3. HYDROCHLOROTHIAZIDE [Interacting]
     Indication: HYPERTENSION
     Dosage: 50 MG, DAILY
     Route: 048
     Dates: start: 200812, end: 20130805
  4. GLICLAZIDE [Concomitant]
     Dosage: 30 MG, UNK
  5. BISOPROLOL [Concomitant]
     Dosage: 5 MG, UNK
     Dates: start: 201103
  6. ALLOPURINOL [Concomitant]
     Dosage: 100 MG, UNK
     Dates: start: 200707, end: 20130805

REACTIONS (2)
  - Drug interaction [Recovered/Resolved]
  - Renal failure acute [Recovered/Resolved]
